FAERS Safety Report 18800110 (Version 2)
Quarter: 2021Q1

REPORT INFORMATION
  Report Type: Spontaneous
  Country: US (occurrence: US)
  Receive Date: 20210128
  Receipt Date: 20210224
  Transmission Date: 20210419
  Serious: No
  Sender: FDA-Public Use
  Company Number: US-ASTRAZENECA-2021A011744

PATIENT
  Sex: Female
  Weight: 68 kg

DRUGS (1)
  1. BYDUREON BCISE [Suspect]
     Active Substance: EXENATIDE
     Indication: BLOOD GLUCOSE INCREASED
     Route: 058
     Dates: start: 202009

REACTIONS (5)
  - Malaise [Unknown]
  - Device issue [Unknown]
  - Anxiety [Unknown]
  - Drug dose omission by device [Unknown]
  - Drug delivery system issue [Unknown]
